FAERS Safety Report 4524770-7 (Version None)
Quarter: 2004Q4

REPORT INFORMATION
  Report Type: 
  Country: None (occurrence: None)
  Receive Date: 20041208
  Receipt Date: 20041123
  Transmission Date: 20050328
  Serious: Yes (Hospitalization)
  Sender: FDA-Public Use
  Company Number: 2004-BP-09778AU

PATIENT

DRUGS (5)
  1. SPIRIVA [Suspect]
     Indication: CHRONIC OBSTRUCTIVE AIRWAYS DISEASE
     Dosage: 18 MCG (18 MCG, 1 DAILY), IH
     Route: 055
     Dates: start: 20031010, end: 20041004
  2. PERINDOPRIL (PERINDOPRIL) (TA) [Concomitant]
  3. OMEPRAZOLE [Concomitant]
  4. HYDROCORTISONE [Concomitant]
  5. PREDNISOLONE [Concomitant]

REACTIONS (2)
  - CHRONIC OBSTRUCTIVE AIRWAYS DISEASE EXACERBATED [None]
  - SEPSIS [None]
